FAERS Safety Report 6765233-8 (Version None)
Quarter: 2010Q2

REPORT INFORMATION
  Report Type: 
  Country: None (occurrence: None)
  Receive Date: 20100611
  Receipt Date: 20100602
  Transmission Date: 20101027
  Serious: Yes (Disabling, Other)
  Sender: FDA-Public Use
  Company Number: US-ASTRAZENECA-2005UW11955

PATIENT
  Age: 346 Month
  Sex: Male
  Weight: 107 kg

DRUGS (48)
  1. SEROQUEL [Suspect]
     Indication: BIPOLAR DISORDER
     Dosage: 100 - 300 MG DAILY
     Route: 048
     Dates: start: 20030611
  2. SEROQUEL [Suspect]
     Indication: SLEEP DISORDER
     Dosage: 100 - 300 MG DAILY
     Route: 048
     Dates: start: 20030611
  3. SEROQUEL [Suspect]
     Route: 048
     Dates: start: 20031101
  4. SEROQUEL [Suspect]
     Route: 048
     Dates: start: 20031101
  5. SEROQUEL [Suspect]
     Route: 048
     Dates: start: 20031101
  6. SEROQUEL [Suspect]
     Route: 048
     Dates: start: 20031101
  7. RISPERDAL [Suspect]
     Dates: start: 20030801, end: 20030901
  8. RISPERDAL [Suspect]
     Dates: start: 20030804
  9. ZYPREXA [Suspect]
     Indication: SLEEP DISORDER
     Dates: start: 20020101, end: 20030101
  10. ZYPREXA [Suspect]
     Dates: start: 20020703, end: 20031001
  11. ZYPREXA [Suspect]
     Dates: start: 20020924
  12. LEXAPRO [Concomitant]
  13. LEXAPRO [Concomitant]
     Dosage: 15 - 20 MG DAILY
     Dates: start: 20040415
  14. LEXAPRO [Concomitant]
     Dates: start: 20050101, end: 20060101
  15. XANAX [Concomitant]
  16. XANAX [Concomitant]
     Dates: start: 20031021
  17. XANAX [Concomitant]
     Dates: start: 20050101
  18. ZOCOR [Concomitant]
  19. ZOCOR [Concomitant]
     Dosage: 20 - 80 MG DAILY
     Dates: start: 20020408
  20. AVANDAMET [Concomitant]
     Dosage: 4/500 MG BID
  21. TRAZODONE [Concomitant]
  22. PAXIL [Concomitant]
     Dates: start: 20030101
  23. PAXIL [Concomitant]
     Dates: start: 20050101
  24. PAXIL [Concomitant]
  25. PAXIL [Concomitant]
     Dates: start: 20060227
  26. DEPAKOTE ER [Concomitant]
  27. DEPAKOTE ER [Concomitant]
     Dates: start: 20030925
  28. LAMICTAL [Concomitant]
  29. LAMICTAL [Concomitant]
     Dates: start: 20030111
  30. EFFEXOR XR [Concomitant]
  31. EFFEXOR XR [Concomitant]
     Dosage: STRENGTH 75 - 150 MG
     Dates: start: 20030925, end: 20040101
  32. REMERON [Concomitant]
  33. REMERON [Concomitant]
     Dates: start: 20030925
  34. HYDROXYZINE HCL [Concomitant]
  35. ZOLOFT [Concomitant]
     Dates: start: 20020101
  36. PROZAC [Concomitant]
  37. VALIUM [Concomitant]
  38. NEURONTIN [Concomitant]
     Dosage: 100 - 900 MG DAILY
     Dates: start: 20050525
  39. PAMELOR [Concomitant]
     Dates: start: 20041115
  40. WELLBUTRIN [Concomitant]
     Dates: start: 20050215
  41. TOFRANIL [Concomitant]
     Dates: start: 20050906
  42. FLOMAX [Concomitant]
     Dates: start: 20060227
  43. HYDROCODONE [Concomitant]
  44. KLONOPIN [Concomitant]
     Dates: start: 20040712
  45. VISTARIL [Concomitant]
     Dates: start: 20040707
  46. AMBIEN [Concomitant]
     Dates: start: 20040112
  47. RESTORIL [Concomitant]
     Dates: start: 20040602
  48. ARIPIPRAZOLE [Concomitant]
     Dates: start: 20020101

REACTIONS (18)
  - ABDOMINAL PAIN UPPER [None]
  - CARPAL TUNNEL SYNDROME [None]
  - DIABETIC NEUROPATHY [None]
  - EYE INJURY [None]
  - FATIGUE [None]
  - HEPATIC ENZYME INCREASED [None]
  - HYPOAESTHESIA [None]
  - IRRITABILITY [None]
  - MOVEMENT DISORDER [None]
  - NEUROPATHY PERIPHERAL [None]
  - OBESITY [None]
  - PARAESTHESIA [None]
  - SELF-INJURIOUS IDEATION [None]
  - SLEEP APNOEA SYNDROME [None]
  - TARDIVE DYSKINESIA [None]
  - TONSILLITIS [None]
  - TYPE 2 DIABETES MELLITUS [None]
  - WEIGHT INCREASED [None]
